FAERS Safety Report 5378039-1 (Version None)
Quarter: 2007Q2

REPORT INFORMATION
  Report Type: 
  Country: None (occurrence: None)
  Receive Date: 20070629
  Receipt Date: 20070621
  Transmission Date: 20071010
  Serious: Yes (Hospitalization)
  Sender: FDA-Public Use
  Company Number: CHPA2007US07111

PATIENT
  Age: 77 Year
  Sex: Female
  Weight: 58 kg

DRUGS (7)
  1. TRANSDERM SCOP [Suspect]
     Indication: PROPHYLAXIS AGAINST MOTION SICKNESS
     Dosage: 1.5 MG, Q72H, TRANSDERMAL
     Route: 062
     Dates: start: 20070527, end: 20070604
  2. NIFEDICAL (NIOFEDIPINE) [Concomitant]
  3. ASPIRIN [Concomitant]
  4. FOSAMAX [Concomitant]
  5. VITAMIN D [Concomitant]
  6. LIPITOR/ NET/ (ATORVASTATIN CALCIUM) [Concomitant]
  7. DRAMAMINE/NEZ/ (DIMENHYDRINATE) [Concomitant]

REACTIONS (8)
  - AGITATION [None]
  - DEHYDRATION [None]
  - DIZZINESS [None]
  - FALL [None]
  - HEAD INJURY [None]
  - LOSS OF CONSCIOUSNESS [None]
  - STRESS [None]
  - WRONG TECHNIQUE IN DRUG USAGE PROCESS [None]
